FAERS Safety Report 9242837 (Version 1)
Quarter: 2013Q2

REPORT INFORMATION
  Report Type: Spontaneous
  Country: US (occurrence: US)
  Receive Date: 20130418
  Receipt Date: 20130418
  Transmission Date: 20140414
  Serious: Yes (Hospitalization)
  Sender: FDA-Public Use
  Company Number: US-SANOFI-AVENTIS-2012SA090119

PATIENT
  Age: 69 Year
  Sex: Male
  Weight: 76.4 kg

DRUGS (4)
  1. LOVENOX [Suspect]
     Indication: PRODUCT USED FOR UNKNOWN INDICATION
     Route: 065
     Dates: start: 20100709, end: 20100714
  2. CLOPIDOGREL [Concomitant]
     Dates: start: 20100706
  3. COUMADIN [Concomitant]
     Dates: start: 20100711, end: 20100714
  4. BLINDED THERAPY [Concomitant]
     Dates: start: 20100426, end: 20100709

REACTIONS (1)
  - Haematuria [Recovered/Resolved]
